FAERS Safety Report 6305952-0 (Version None)
Quarter: 2009Q3

REPORT INFORMATION
  Report Type: 
  Country: None (occurrence: None)
  Receive Date: 20090812
  Receipt Date: 20090804
  Transmission Date: 20100115
  Serious: Yes (Death, Other)
  Sender: FDA-Public Use
  Company Number: CN-CELGENEUS-035-20785-09080694

PATIENT

DRUGS (5)
  1. THALOMID [Suspect]
     Indication: OVARIAN EPITHELIAL CANCER
     Route: 048
  2. THALOMID [Suspect]
     Route: 048
  3. IRINOTECAN HCL [Suspect]
     Indication: OVARIAN EPITHELIAL CANCER
     Route: 065
  4. GLUCOSE WATER [Suspect]
     Indication: OVARIAN EPITHELIAL CANCER
     Route: 051
  5. COLONY STIMULATING FACTORS [Concomitant]
     Indication: NEUTROPENIA
     Route: 065

REACTIONS (18)
  - ALOPECIA [None]
  - ANAEMIA [None]
  - CONSTIPATION [None]
  - DEATH [None]
  - DIARRHOEA [None]
  - FATIGUE [None]
  - FEBRILE NEUTROPENIA [None]
  - HEPATIC LESION [None]
  - NAUSEA [None]
  - NEUTROPENIA [None]
  - PAIN [None]
  - PERIPHERAL SENSORY NEUROPATHY [None]
  - RASH [None]
  - SOMNOLENCE [None]
  - SWELLING [None]
  - THROMBOCYTOPENIA [None]
  - VENOUS THROMBOSIS [None]
  - VOMITING [None]
